FAERS Safety Report 5567645-7 (Version None)
Quarter: 2007Q4

REPORT INFORMATION
  Report Type: 
  Country: None (occurrence: None)
  Receive Date: 20071219
  Receipt Date: 20071212
  Transmission Date: 20080405
  Serious: Yes (Other)
  Sender: FDA-Public Use
  Company Number: GB-PFIZER INC-2007105215

PATIENT
  Age: 46 Year
  Sex: Male

DRUGS (1)
  1. CHANTIX [Suspect]
     Route: 048
     Dates: start: 20071017, end: 20071121

REACTIONS (2)
  - DISTURBANCE IN ATTENTION [None]
  - MEMORY IMPAIRMENT [None]
